FAERS Safety Report 24636762 (Version 2)
Quarter: 2024Q4

REPORT INFORMATION
  Report Type: Spontaneous
  Country: US (occurrence: US)
  Receive Date: 20241119
  Receipt Date: 20241126
  Transmission Date: 20250115
  Serious: Yes (Life-Threatening, Hospitalization)
  Sender: BAUSCH AND LOMB
  Company Number: US-MLMSERVICE-20241104-PI250024-00206-1

PATIENT
  Age: 24 Year
  Sex: Female

DRUGS (4)
  1. LORAZEPAM [Suspect]
     Active Substance: LORAZEPAM
     Indication: Nausea
     Route: 065
  2. NALBUPHINE HYDROCHLORIDE [Suspect]
     Active Substance: NALBUPHINE HYDROCHLORIDE
     Indication: Abdominal pain
     Route: 065
  3. ADENOSINE [Suspect]
     Active Substance: ADENOSINE
     Indication: Hypertension
     Route: 065
  4. ADENOSINE [Suspect]
     Active Substance: ADENOSINE
     Indication: Heart rate increased
     Route: 065

REACTIONS (2)
  - Hypoperfusion [Unknown]
  - Mental status changes [Unknown]
